FAERS Safety Report 13668034 (Version 4)
Quarter: 2018Q2

REPORT INFORMATION
  Report Type: Spontaneous
  Country: US (occurrence: US)
  Receive Date: 20170620
  Receipt Date: 20180515
  Transmission Date: 20180711
  Serious: No
  Sender: FDA-Public Use
  Company Number: US-PFIZER INC-2017265245

PATIENT
  Age: 67 Year
  Sex: Female
  Weight: 71.2 kg

DRUGS (2)
  1. SUTENT [Suspect]
     Active Substance: SUNITINIB MALATE
     Indication: RENAL CELL CARCINOMA
     Dosage: 50 MG, CYCLIC (DAYS 1-14 OF 21 DAYS)
     Route: 048
     Dates: start: 201701
  2. SUTENT [Suspect]
     Active Substance: SUNITINIB MALATE
     Indication: HEPATIC CANCER
     Dosage: 50 MG, CYCLIC (D 1-14 Q 21 DAYS)
     Route: 048
     Dates: start: 201701

REACTIONS (5)
  - Abdominal pain [Unknown]
  - Back pain [Unknown]
  - Glossodynia [Unknown]
  - Tenderness [Unknown]
  - Pain [Unknown]

NARRATIVE: CASE EVENT DATE: 20171020
